FAERS Safety Report 5473430-7 (Version None)
Quarter: 2007Q4

REPORT INFORMATION
  Report Type: 
  Country: None (occurrence: None)
  Receive Date: 20071001
  Receipt Date: 20070927
  Transmission Date: 20080405
  Serious: Yes (Hospitalization)
  Sender: FDA-Public Use
  Company Number: US-BRISTOL-MYERS SQUIBB COMPANY-13867288

PATIENT
  Age: 56 Year
  Sex: Female

DRUGS (3)
  1. ERBITUX [Suspect]
     Indication: TONSIL CANCER
     Dosage: 16-JUL-07 39 MINUTES 17-JUL-07 7 MINUTES.
     Route: 042
     Dates: start: 20070716, end: 20070717
  2. BENADRYL [Concomitant]
     Indication: PREMEDICATION
  3. DECADRON [Concomitant]
     Indication: PREMEDICATION

REACTIONS (5)
  - DYSPHAGIA [None]
  - ERYTHEMA [None]
  - LIP SWELLING [None]
  - PRURITUS [None]
  - TONGUE DISORDER [None]
